FAERS Safety Report 4997205-8 (Version None)
Quarter: 2006Q2

REPORT INFORMATION
  Report Type: 
  Country: None (occurrence: None)
  Receive Date: 20060505
  Receipt Date: 20060505
  Transmission Date: 20061013
  Serious: Yes (Other)
  Sender: FDA-Public Use
  Company Number: None

PATIENT
  Age: 41 Year
  Sex: Female

DRUGS (3)
  1. SEROQUEL [Suspect]
     Indication: BIPOLAR DISORDER
     Dosage: 100 MG HS PO
     Route: 048
  2. SEROQUEL [Suspect]
     Indication: SCHIZOPHRENIA
     Dosage: 100 MG HS PO
     Route: 048
  3. PAROXETINE [Suspect]
     Indication: DEPRESSION
     Dosage: 10 MG DAILY PO
     Route: 048

REACTIONS (4)
  - DIZZINESS [None]
  - DRUG RESISTANCE [None]
  - SOMNOLENCE [None]
  - TREATMENT NONCOMPLIANCE [None]
